FAERS Safety Report 10043253 (Version 2)
Quarter: 2015Q2

REPORT INFORMATION
  Report Type: Spontaneous
  Country: US (occurrence: US)
  Receive Date: 20140328
  Receipt Date: 20150428
  Transmission Date: 20150821
  Serious: Yes (Other)
  Sender: FDA-Public Use
  Company Number: US-TEVA-470678USA

PATIENT
  Sex: Female

DRUGS (1)
  1. PARAGARD T 380A [Suspect]
     Active Substance: COPPER
     Route: 015
     Dates: start: 20090429

REACTIONS (7)
  - Pain in extremity [Unknown]
  - Pelvic pain [Unknown]
  - Coital bleeding [Unknown]
  - Pain [Unknown]
  - Device dislocation [Unknown]
  - Embedded device [Unknown]
  - Device breakage [Unknown]

NARRATIVE: CASE EVENT DATE: 201311
